FAERS Safety Report 25588868 (Version 2)
Quarter: 2025Q3

REPORT INFORMATION
  Report Type: Spontaneous
  Country: US (occurrence: US)
  Receive Date: 20250722
  Receipt Date: 20250915
  Transmission Date: 20251020
  Serious: No
  Sender: BIOVITRUM
  Company Number: US-BIOVITRUM-2025-US-009928

PATIENT
  Sex: Female

DRUGS (1)
  1. DOPTELET [Suspect]
     Active Substance: AVATROMBOPAG MALEATE
     Indication: Product used for unknown indication
     Route: 048
     Dates: start: 20250619

REACTIONS (6)
  - Platelet count decreased [Unknown]
  - Fatigue [Unknown]
  - Headache [Unknown]
  - Product dose omission issue [Unknown]
  - Pain in extremity [Unknown]
  - Stress [Unknown]
